FAERS Safety Report 5234205-7 (Version None)
Quarter: 2007Q1

REPORT INFORMATION
  Report Type: 
  Country: None (occurrence: None)
  Receive Date: 20070207
  Receipt Date: 20070122
  Transmission Date: 20070707
  Serious: No
  Sender: FDA-Public Use
  Company Number: 235383

PATIENT
  Age: 83 Year
  Sex: Female
  Weight: 138 kg

DRUGS (1)
  1. AVASTIN [Suspect]
     Indication: MACULAR DEGENERATION
     Dosage: INTRAVITREAL
     Dates: start: 20060701

REACTIONS (2)
  - ARTHRALGIA [None]
  - BLOOD PRESSURE INCREASED [None]
